FAERS Safety Report 10994753 (Version 1)
Quarter: 2015Q2

REPORT INFORMATION
  Report Type: Spontaneous
  Country: IT (occurrence: IT)
  Receive Date: 20150407
  Receipt Date: 20150407
  Transmission Date: 20150821
  Serious: Yes (Hospitalization)
  Sender: FDA-Public Use
  Company Number: IT-ASTRAZENECA-2015SE30561

PATIENT
  Age: 27433 Day
  Sex: Female

DRUGS (7)
  1. CITALOPRAM [Concomitant]
     Active Substance: CITALOPRAM HYDROBROMIDE
  2. MATRIFEN [Suspect]
     Active Substance: FENTANYL
     Indication: PAIN
     Route: 062
     Dates: start: 20130601, end: 20140710
  3. ZOMETA [Suspect]
     Active Substance: ZOLEDRONIC ACID
     Indication: METASTASIS
     Dosage: 1 DOSAGE FORM, 4MG POWDER AND SOLVENT FOR SOLUTION FOR INFUSION, CYCLIC
     Route: 042
     Dates: start: 20140620, end: 20140710
  4. MACROGOL EG [Concomitant]
     Dosage: 13.7G POWDER FOR ORAL SOUTION
  5. FASLODEX [Suspect]
     Active Substance: FULVESTRANT
     Indication: METASTASIS
     Dosage: 1 DOSAGE FORM, DAILY, 250MG/ML SOLUTION FOR INJECTION
     Route: 042
     Dates: start: 20140620, end: 20140710
  6. TARGIN [Suspect]
     Active Substance: NALOXONE HYDROCHLORIDE\OXYCODONE HYDROCHLORIDE
     Indication: PAIN
     Dosage: 40MG/20MG DAILY
     Route: 048
     Dates: start: 20130601, end: 20140710
  7. SOLDESAM [Concomitant]
     Active Substance: DEXAMETHASONE
     Dosage: 4MG/ML SOLUTION FOR INJECTION

REACTIONS (3)
  - Incorrect route of drug administration [Unknown]
  - Hyponatraemia [Recovering/Resolving]
  - Presyncope [Recovering/Resolving]

NARRATIVE: CASE EVENT DATE: 20140620
